FAERS Safety Report 4793878-3 (Version None)
Quarter: 2005Q4

REPORT INFORMATION
  Report Type: 
  Country: None (occurrence: None)
  Receive Date: 20051011
  Receipt Date: 20050905
  Transmission Date: 20060501
  Serious: Yes (Life-Threatening)
  Sender: FDA-Public Use
  Company Number: 2005PK01638

PATIENT
  Age: 18519 Day
  Sex: Male
  Weight: 85 kg

DRUGS (1)
  1. NAROPIN [Suspect]
     Indication: SPINAL ANAESTHESIA
     Dosage: NAROPIN 0.5% 4.8 ML
     Route: 037
     Dates: start: 20050512

REACTIONS (5)
  - ACCIDENTAL OVERDOSE [None]
  - ANAESTHETIC COMPLICATION [None]
  - BRADYCARDIA [None]
  - INCORRECT DOSE ADMINISTERED [None]
  - MEDICATION ERROR [None]
